FAERS Safety Report 7610746-X (Version None)
Quarter: 2011Q3

REPORT INFORMATION
  Report Type: 
  Country: None (occurrence: None)
  Receive Date: 20110715
  Receipt Date: 20110711
  Transmission Date: 20111222
  Serious: Yes (Hospitalization, Other)
  Sender: FDA-Public Use
  Company Number: US-ELI_LILLY_AND_COMPANY-US200910005439

PATIENT
  Sex: Male
  Weight: 108.84 kg

DRUGS (17)
  1. SYNTHROID [Concomitant]
     Dosage: 0.1 MG, QD
  2. ZESTRIL [Concomitant]
     Dosage: 2.5 MG, QD
  3. COUMADIN [Concomitant]
     Dosage: UNK
  4. OMACOR [Concomitant]
     Dosage: 100 MG, BID
  5. METFORMIN HCL [Concomitant]
     Dosage: 1000 MG, BID
  6. INSULIN [Concomitant]
  7. CRESTOR [Concomitant]
     Dosage: 10 MG, QD
  8. BYETTA [Suspect]
     Dosage: UNK, UNKNOWN
     Route: 065
     Dates: start: 20070501, end: 20080421
  9. BETA BLOCKING AGENTS [Concomitant]
  10. ASPIRIN [Concomitant]
     Dosage: 81 MG, QD
  11. COREG [Concomitant]
     Dosage: 12.5 MG, BID
  12. SPIRIVA [Concomitant]
     Dosage: 18 UG, QD
     Route: 055
  13. TYLENOL                                 /SCH/ [Concomitant]
  14. FORADIL [Concomitant]
     Dosage: 12 UG, BID
  15. LASIX [Concomitant]
     Dosage: 80 MG, QD
  16. TRICOR [Concomitant]
     Dosage: 145 MG, QD
     Route: 048
  17. PRILOSEC [Concomitant]
     Dosage: 20 MG, BID

REACTIONS (8)
  - NAUSEA [None]
  - PNEUMONIA [None]
  - WEIGHT DECREASED [None]
  - OFF LABEL USE [None]
  - CARDIAC PACEMAKER INSERTION [None]
  - SICK SINUS SYNDROME [None]
  - ATRIAL FIBRILLATION [None]
  - DIZZINESS [None]
